FAERS Safety Report 11970669 (Version 1)
Quarter: 2016Q1

REPORT INFORMATION
  Report Type: Spontaneous
  Country: US (occurrence: None)
  Receive Date: 20160126
  Receipt Date: 20160126
  Transmission Date: 20160526
  Serious: Yes (Hospitalization)
  Sender: FDA-Public Use
  Company Number: None

PATIENT
  Age: 73 Year
  Sex: Male
  Weight: 85.6 kg

DRUGS (2)
  1. THALIDOMIDE [Suspect]
     Active Substance: THALIDOMIDE
  2. WARFARIN [Suspect]
     Active Substance: WARFARIN
     Dates: end: 20150923

REACTIONS (1)
  - Embolism [None]

NARRATIVE: CASE EVENT DATE: 20150923
